FAERS Safety Report 21854706 (Version 1)
Quarter: 2023Q1

REPORT INFORMATION
  Report Type: Spontaneous
  Country: US (occurrence: None)
  Receive Date: 20230112
  Receipt Date: 20230112
  Transmission Date: 20230418
  Serious: Yes (unspecified)
  Sender: FDA-Public Use
  Company Number: None

PATIENT
  Age: 72 Year
  Sex: Male
  Weight: 80 kg

DRUGS (1)
  1. DENOSUMAB [Suspect]
     Active Substance: DENOSUMAB
     Indication: Plasma cell myeloma
     Dosage: 20 MG OTHER SQ
     Route: 058
     Dates: start: 20220720, end: 20221128

REACTIONS (4)
  - Gingival abscess [None]
  - Therapy interrupted [None]
  - Osteonecrosis of jaw [None]
  - Allogenic stem cell transplantation [None]

NARRATIVE: CASE EVENT DATE: 20221220
